FAERS Safety Report 5583943-5 (Version None)
Quarter: 2008Q1

REPORT INFORMATION
  Report Type: 
  Country: None (occurrence: None)
  Receive Date: 20080108
  Receipt Date: 20080104
  Transmission Date: 20080703
  Serious: Yes (Hospitalization)
  Sender: FDA-Public Use
  Company Number: FR-ELI_LILLY_AND_COMPANY-FR200709006392

PATIENT
  Sex: Male
  Weight: 80 kg

DRUGS (6)
  1. ZYPREXA [Suspect]
     Indication: DYSTHYMIC DISORDER
     Dosage: 10 MG, DAILY (1/D)
     Route: 048
     Dates: start: 20061212
  2. ZYPREXA [Suspect]
     Dosage: 560 MG, DAILY (1/D)
     Route: 048
     Dates: start: 20070601
  3. DEPAKENE [Concomitant]
     Indication: DYSTHYMIC DISORDER
     Dosage: UNK, UNK
     Route: 048
  4. MIRTAZAPINE [Concomitant]
     Dates: start: 20061201
  5. MIRTAZAPINE [Concomitant]
     Dates: start: 20070601, end: 20070601
  6. ZOLOFT [Concomitant]
     Dosage: UNK, UNK
     Route: 048
     Dates: start: 20061201

REACTIONS (5)
  - COMA [None]
  - MULTIPLE DRUG OVERDOSE INTENTIONAL [None]
  - NEUTROPENIA [None]
  - PSYCHOMOTOR RETARDATION [None]
  - SUICIDE ATTEMPT [None]
